FAERS Safety Report 12521163 (Version 2)
Quarter: 2016Q4

REPORT INFORMATION
  Report Type: Report from Study
  Country: JP (occurrence: JP)
  Receive Date: 20160701
  Receipt Date: 20161102
  Transmission Date: 20170207
  Serious: Yes (Hospitalization)
  Sender: FDA-Public Use
  Company Number: JP-SA-2016SA119910

PATIENT
  Age: 85 Year
  Sex: Male

DRUGS (8)
  1. REGPARA [Suspect]
     Active Substance: CINACALCET HYDROCHLORIDE
     Route: 048
     Dates: start: 20150622
  2. NESP [Suspect]
     Active Substance: DARBEPOETIN ALFA
     Route: 042
     Dates: start: 20151207, end: 20151220
  3. NESP [Suspect]
     Active Substance: DARBEPOETIN ALFA
     Route: 042
     Dates: start: 20151228
  4. PHOSBLOCK [Suspect]
     Active Substance: FERRIC HYDROXIDE
     Route: 048
     Dates: start: 20140324, end: 20150914
  5. NESP [Suspect]
     Active Substance: DARBEPOETIN ALFA
     Route: 042
     Dates: start: 20150914, end: 20151030
  6. NESP [Suspect]
     Active Substance: DARBEPOETIN ALFA
     Route: 042
     Dates: start: 20151030, end: 20151207
  7. NESP [Suspect]
     Active Substance: DARBEPOETIN ALFA
     Route: 042
     Dates: start: 20150608, end: 20150914
  8. NESP [Suspect]
     Active Substance: DARBEPOETIN ALFA
     Route: 042
     Dates: start: 20151220, end: 20151228

REACTIONS (5)
  - Arteriovenous fistula occlusion [Recovering/Resolving]
  - Arteriovenous fistula site complication [Recovering/Resolving]
  - Arteriovenous fistula site complication [Recovering/Resolving]
  - Arteriovenous fistula occlusion [Recovering/Resolving]
  - Cardiac valve disease [Recovering/Resolving]

NARRATIVE: CASE EVENT DATE: 20150803
